FAERS Safety Report 4554391-1 (Version None)
Quarter: 2005Q1

REPORT INFORMATION
  Report Type: 
  Country: None (occurrence: None)
  Receive Date: 20050118
  Receipt Date: 20041220
  Transmission Date: 20050727
  Serious: Yes (Death, Hospitalization)
  Sender: FDA-Public Use
  Company Number: DE-JNJFOC-20031204922

PATIENT
  Sex: Male
  Weight: 94 kg

DRUGS (7)
  1. TOPIRAMATE [Suspect]
     Indication: EPILEPSY
     Route: 049
     Dates: start: 20031009, end: 20040115
  2. ERGENYL CHRONO [Concomitant]
     Route: 049
  3. ERGENYL CHRONO [Concomitant]
     Route: 049
  4. EUNERPAN [Concomitant]
     Route: 065
  5. EUNERPAN [Concomitant]
     Route: 065
  6. VOLTAREN [Concomitant]
     Route: 065
  7. UNAT [Concomitant]
     Route: 065

REACTIONS (2)
  - GENERAL PHYSICAL HEALTH DETERIORATION [None]
  - PNEUMONIA [None]
